FAERS Safety Report 10267435 (Version 1)
Quarter: 2014Q2

REPORT INFORMATION
  Report Type: Spontaneous
  Country: US (occurrence: None)
  Receive Date: 20140626
  Receipt Date: 20140626
  Transmission Date: 20141212
  Serious: Yes (Disabling)
  Sender: FDA-Public Use
  Company Number: None

PATIENT
  Age: 61 Year
  Sex: Female
  Weight: 56.7 kg

DRUGS (1)
  1. LUMIGAN [Suspect]
     Indication: GLAUCOMA
     Dosage: 1 DROP ONCE DAILY INTO THE EYE
     Route: 047
     Dates: start: 20070201, end: 20100609

REACTIONS (12)
  - Lacrimation increased [None]
  - Eye irritation [None]
  - Eye haemorrhage [None]
  - Ocular hyperaemia [None]
  - Fatigue [None]
  - Weight increased [None]
  - Dermatitis [None]
  - Hypersensitivity [None]
  - Photosensitivity reaction [None]
  - Rash [None]
  - Furuncle [None]
  - Product formulation issue [None]
